FAERS Safety Report 13068420 (Version 1)
Quarter: 2016Q4

REPORT INFORMATION
  Report Type: Spontaneous
  Country: US (occurrence: US)
  Receive Date: 20161228
  Receipt Date: 20161228
  Transmission Date: 20170207
  Serious: No
  Sender: FDA-Public Use
  Company Number: US-009507513-1612USA000095

PATIENT
  Sex: Male

DRUGS (1)
  1. PRINIVIL [Suspect]
     Active Substance: LISINOPRIL
     Indication: HYPERTENSION
     Dosage: 5 MG PILL, TAKES 1/2 PILL BY MOUTH ONCE DAILY
     Route: 048

REACTIONS (2)
  - Wrong technique in product usage process [Unknown]
  - Hypotension [Unknown]
